FAERS Safety Report 26023495 (Version 2)
Quarter: 2025Q4

REPORT INFORMATION
  Report Type: Spontaneous
  Country: JP (occurrence: JP)
  Receive Date: 20251111
  Receipt Date: 20251125
  Transmission Date: 20260117
  Serious: Yes (Death, Other)
  Sender: GENMAB
  Company Number: JP-GENMAB-2025-03448

PATIENT
  Age: 8 Decade
  Sex: Female

DRUGS (1)
  1. EPKINLY [Suspect]
     Active Substance: EPCORITAMAB-BYSP
     Indication: Product used for unknown indication
     Dosage: 0.16 MILLIGRAM, SINGLE
     Route: 065
     Dates: start: 20251028, end: 20251028

REACTIONS (2)
  - Malignant neoplasm progression [Fatal]
  - Interleukin-2 receptor increased [Fatal]

NARRATIVE: CASE EVENT DATE: 20250101
